FAERS Safety Report 17587072 (Version 1)
Quarter: 2020Q1

REPORT INFORMATION
  Report Type: Spontaneous
  Country: FR (occurrence: FR)
  Receive Date: 20200326
  Receipt Date: 20200326
  Transmission Date: 20200409
  Serious: Yes (Other)
  Sender: FDA-Public Use
  Company Number: FR-ALLERGAN-2012985US

PATIENT
  Sex: Female
  Weight: 50 kg

DRUGS (1)
  1. PYLERA [Suspect]
     Active Substance: BISMUTH SUBCITRATE POTASSIUM\METRONIDAZOLE\TETRACYCLINE HYDROCHLORIDE
     Indication: HELICOBACTER INFECTION
     Route: 048
     Dates: start: 20200217, end: 20200227

REACTIONS (14)
  - Hallucination [Unknown]
  - Eructation [Unknown]
  - Diarrhoea [Unknown]
  - Dysgeusia [Unknown]
  - Pruritus [Unknown]
  - Anxiety [Unknown]
  - Nausea [Unknown]
  - Depression [Unknown]
  - Faeces discoloured [Unknown]
  - Confusional state [Unknown]
  - Asthenia [Unknown]
  - Somnolence [Unknown]
  - Chest pain [Unknown]
  - Vertigo [Unknown]

NARRATIVE: CASE EVENT DATE: 20200201
